FAERS Safety Report 9563011 (Version 1)
Quarter: 2013Q3

REPORT INFORMATION
  Report Type: Spontaneous
  Country: TR (occurrence: TR)
  Receive Date: 20130927
  Receipt Date: 20130927
  Transmission Date: 20140515
  Serious: Yes (Other)
  Sender: FDA-Public Use
  Company Number: PHHY2013TR105416

PATIENT
  Age: 36 Year
  Sex: Male

DRUGS (9)
  1. ALLOPURINOL [Suspect]
     Dosage: 300 MG, PER DAY
  2. PYRAZINAMIDE [Interacting]
     Indication: DISSEMINATED TUBERCULOSIS
     Dosage: 2 G, PER DAY
  3. PREDNISONE [Concomitant]
     Dosage: 6 MG, PER DAY
  4. NAPROXEN [Concomitant]
     Dosage: 750 MG, PER DAY
  5. OMEPRAZOLE [Concomitant]
     Dosage: 20 MG, PER DAY
  6. ISONIAZID [Concomitant]
     Indication: DISSEMINATED TUBERCULOSIS
  7. RIFAMPICIN [Concomitant]
     Indication: DISSEMINATED TUBERCULOSIS
  8. STREPTOMYCIN [Concomitant]
     Indication: DISSEMINATED TUBERCULOSIS
  9. ASPIRIN [Concomitant]
     Dosage: 2 G, DAY

REACTIONS (2)
  - Hyperuricaemia [Recovering/Resolving]
  - Drug interaction [Unknown]
